FAERS Safety Report 23923437 (Version 7)
Quarter: 2025Q2

REPORT INFORMATION
  Report Type: Report from Study
  Country: CN (occurrence: CN)
  Receive Date: 20240531
  Receipt Date: 20250605
  Transmission Date: 20250717
  Serious: Yes (Other)
  Sender: ROCHE
  Company Number: CN-ROCHE-3568193

PATIENT
  Age: 79 Year
  Sex: Female

DRUGS (62)
  1. POLATUZUMAB VEDOTIN [Suspect]
     Active Substance: POLATUZUMAB VEDOTIN
     Indication: Diffuse large B-cell lymphoma
     Route: 042
     Dates: start: 20230710, end: 20230710
  2. POLATUZUMAB VEDOTIN [Suspect]
     Active Substance: POLATUZUMAB VEDOTIN
     Route: 042
     Dates: start: 20230802, end: 20230802
  3. POLATUZUMAB VEDOTIN [Suspect]
     Active Substance: POLATUZUMAB VEDOTIN
     Route: 042
     Dates: start: 20230828, end: 20230828
  4. RITUXIMAB [Suspect]
     Active Substance: RITUXIMAB
     Indication: Diffuse large B-cell lymphoma
     Route: 042
     Dates: start: 20230708, end: 20230708
  5. RITUXIMAB [Suspect]
     Active Substance: RITUXIMAB
     Route: 042
     Dates: start: 20230803, end: 20230803
  6. RITUXIMAB [Suspect]
     Active Substance: RITUXIMAB
     Route: 042
     Dates: start: 20230829, end: 20230829
  7. VORICONAZOLE [Suspect]
     Active Substance: VORICONAZOLE
     Indication: Oral fungal infection
     Route: 048
     Dates: end: 20230821
  8. DOXORUBICIN [Suspect]
     Active Substance: DOXORUBICIN
     Indication: Diffuse large B-cell lymphoma
     Route: 065
     Dates: start: 20230708, end: 20230708
  9. DEXAMETHASONE [Suspect]
     Active Substance: DEXAMETHASONE
     Indication: Diffuse large B-cell lymphoma
     Route: 042
     Dates: start: 20230801, end: 20230803
  10. DEXAMETHASONE [Suspect]
     Active Substance: DEXAMETHASONE
     Route: 042
     Dates: start: 20230708, end: 20230713
  11. DEXAMETHASONE [Suspect]
     Active Substance: DEXAMETHASONE
     Route: 042
     Dates: start: 20230828, end: 20230831
  12. CYCLOPHOSPHAMIDE [Suspect]
     Active Substance: CYCLOPHOSPHAMIDE
     Indication: Diffuse large B-cell lymphoma
     Route: 042
     Dates: end: 20230805
  13. CYCLOPHOSPHAMIDE [Suspect]
     Active Substance: CYCLOPHOSPHAMIDE
     Route: 042
     Dates: start: 20230830, end: 20230830
  14. GLUTATHIONE [Concomitant]
     Active Substance: GLUTATHIONE
     Dates: start: 20230822
  15. MEROPENEM [Concomitant]
     Active Substance: MEROPENEM
     Route: 042
     Dates: start: 20230817
  16. VANCOMYCIN HYDROCHLORIDE [Concomitant]
     Active Substance: VANCOMYCIN HYDROCHLORIDE
     Route: 042
     Dates: start: 20230723, end: 20230725
  17. CEFOPERAZONE SODIUM\SULBACTAM SODIUM [Concomitant]
     Active Substance: CEFOPERAZONE SODIUM\SULBACTAM SODIUM
     Dates: start: 20230814
  18. CEFOPERAZONE SODIUM\SULBACTAM SODIUM [Concomitant]
     Active Substance: CEFOPERAZONE SODIUM\SULBACTAM SODIUM
     Route: 042
     Dates: start: 20230716, end: 20230719
  19. CEFOPERAZONE SODIUM\SULBACTAM SODIUM [Concomitant]
     Active Substance: CEFOPERAZONE SODIUM\SULBACTAM SODIUM
     Route: 042
     Dates: start: 20230814, end: 20230817
  20. potassium citrate oral solution [Concomitant]
     Route: 048
     Dates: start: 20230718, end: 20230912
  21. potassium citrate oral solution [Concomitant]
     Route: 048
     Dates: start: 20230707, end: 20230716
  22. potassium citrate oral solution [Concomitant]
     Route: 048
     Dates: start: 20230801, end: 20230809
  23. potassium citrate oral solution [Concomitant]
     Route: 048
     Dates: start: 20230717, end: 20230717
  24. potassium citrate oral solution [Concomitant]
     Route: 048
     Dates: start: 20230718, end: 20230912
  25. Valsartan capsules [Concomitant]
     Route: 048
     Dates: start: 2021
  26. compound chlorhexidine gargle [Concomitant]
     Dosage: OTHER ROUTE OF MEDICATION ADMIN-GARGLE
     Dates: start: 20230707, end: 20230912
  27. compound chlorhexidine gargle [Concomitant]
     Dosage: OTHER ROUTE OF MEDICATION ADMIN-GARGLE
     Dates: start: 20230808, end: 2024
  28. morphine sulfate sustained-release tablet [Concomitant]
     Dosage: OTHER MEDICATION FREQUENCY -QN (EVERY NIGHT)
     Route: 048
     Dates: start: 20230707, end: 20230912
  29. dextrose injection 50% [Concomitant]
     Route: 042
     Dates: start: 20230707, end: 20230912
  30. INSULIN HUMAN [Concomitant]
     Active Substance: INSULIN HUMAN
     Route: 042
     Dates: start: 20230718, end: 20230912
  31. AMBROXOL HYDROCHLORIDE [Concomitant]
     Active Substance: AMBROXOL HYDROCHLORIDE
     Route: 042
     Dates: start: 20230717, end: 20230825
  32. VORICONAZOLE [Concomitant]
     Active Substance: VORICONAZOLE
     Route: 048
     Dates: start: 20230707, end: 20230723
  33. VORICONAZOLE [Concomitant]
     Active Substance: VORICONAZOLE
     Route: 048
     Dates: start: 20230809, end: 20230821
  34. FUROSEMIDE [Concomitant]
     Active Substance: FUROSEMIDE
     Route: 042
     Dates: start: 20230717, end: 20230829
  35. FUROSEMIDE [Concomitant]
     Active Substance: FUROSEMIDE
     Route: 042
     Dates: start: 20230707, end: 20230716
  36. pantoprazole sodium enteric tablets [Concomitant]
     Route: 048
     Dates: start: 20230707, end: 20230831
  37. pantoprazole sodium enteric tablets [Concomitant]
     Route: 042
     Dates: start: 20230821, end: 20230824
  38. LACTULOSE [Concomitant]
     Active Substance: LACTULOSE
     Route: 048
     Dates: start: 20230707, end: 20230731
  39. ONDANSETRON HYDROCHLORIDE [Concomitant]
     Active Substance: ONDANSETRON HYDROCHLORIDE
     Route: 048
     Dates: start: 20230708, end: 20230710
  40. SODIUM BICARBONATE [Concomitant]
     Active Substance: SODIUM BICARBONATE
     Route: 042
     Dates: start: 20230708, end: 20230715
  41. PROMETHAZINE [Concomitant]
     Active Substance: PROMETHAZINE HYDROCHLORIDE
     Route: 030
     Dates: start: 20230710, end: 20230710
  42. PROMETHAZINE [Concomitant]
     Active Substance: PROMETHAZINE HYDROCHLORIDE
     Route: 030
     Dates: start: 20230708, end: 20230708
  43. TORSEMIDE [Concomitant]
     Active Substance: TORSEMIDE
     Route: 042
     Dates: start: 20230713, end: 20230713
  44. TORSEMIDE [Concomitant]
     Active Substance: TORSEMIDE
     Route: 042
     Dates: start: 20230720, end: 20230720
  45. acetylcysteine tablets [Concomitant]
     Route: 048
     Dates: start: 20230720, end: 20230912
  46. POTASSIUM CHLORIDE [Concomitant]
     Active Substance: POTASSIUM CHLORIDE
     Route: 042
     Dates: start: 20230801, end: 20230809
  47. montmorillonite powder [Concomitant]
     Route: 048
     Dates: start: 20230731, end: 20230803
  48. montmorillonite powder [Concomitant]
     Route: 048
     Dates: start: 20230812, end: 20230817
  49. montmorillonite powder [Concomitant]
     Route: 048
     Dates: start: 20230811, end: 2024
  50. berberine hydrochloride tablets [Concomitant]
     Route: 048
     Dates: start: 20230812, end: 20230817
  51. berberine hydrochloride tablets [Concomitant]
     Route: 048
     Dates: start: 20230731, end: 20230803
  52. Human granulocyte stimulating factor injection [Concomitant]
     Route: 058
     Dates: start: 20230719, end: 20230722
  53. ENOXAPARIN SODIUM [Concomitant]
     Active Substance: ENOXAPARIN SODIUM
     Route: 058
     Dates: start: 20230811, end: 20230922
  54. DEXAMETHASONE SODIUM PHOSPHATE [Concomitant]
     Active Substance: DEXAMETHASONE SODIUM PHOSPHATE
     Route: 042
     Dates: start: 20230708, end: 20230708
  55. DEXAMETHASONE SODIUM PHOSPHATE [Concomitant]
     Active Substance: DEXAMETHASONE SODIUM PHOSPHATE
     Route: 042
     Dates: start: 20230710, end: 20230710
  56. DEXAMETHASONE SODIUM PHOSPHATE [Concomitant]
     Active Substance: DEXAMETHASONE SODIUM PHOSPHATE
     Route: 042
     Dates: start: 20230802, end: 20230803
  57. ERYTHROMYCIN [Concomitant]
     Active Substance: ERYTHROMYCIN
     Dates: start: 20230719, end: 2024
  58. GLYCERIN [Concomitant]
     Active Substance: GLYCERIN
     Route: 048
     Dates: start: 20230721, end: 20230721
  59. tannin ointment [Concomitant]
     Dates: end: 20230810
  60. polyene phosphatidylcholine capsules [Concomitant]
     Route: 048
     Dates: start: 20230822, end: 20230831
  61. AMINO ACIDS, SOURCE UNSPECIFIED [Concomitant]
     Active Substance: AMINO ACIDS, SOURCE UNSPECIFIED
     Route: 042
     Dates: start: 20230707, end: 20230912
  62. VITAMINS [Concomitant]
     Active Substance: VITAMINS
     Dosage: DOSE 1 OTHERS
     Route: 042
     Dates: start: 20230707, end: 20230912

REACTIONS (17)
  - Myocardial injury [Recovered/Resolved]
  - Oral fungal infection [Recovered/Resolved]
  - Gastrointestinal infection [Recovered/Resolved]
  - Agranulocytosis [Recovered/Resolved]
  - Liver injury [Recovered/Resolved]
  - Urinary tract infection [Recovered/Resolved]
  - Thrombosis [Recovered/Resolved]
  - Diarrhoea [Recovered/Resolved]
  - Neutropenia [Recovered/Resolved]
  - Leukopenia [Recovered/Resolved]
  - Thrombocytopenia [Recovered/Resolved]
  - Anaemia [Recovered/Resolved]
  - Lymphopenia [Not Recovered/Not Resolved]
  - Hypokalaemia [Recovered/Resolved]
  - Hypokalaemia [Recovered/Resolved]
  - Muscular weakness [Not Recovered/Not Resolved]
  - Agranulocytosis [Recovered/Resolved]

NARRATIVE: CASE EVENT DATE: 20230710
